FAERS Safety Report 9302017 (Version 1)
Quarter: 2013Q2

REPORT INFORMATION
  Report Type: Spontaneous
  Country: US (occurrence: US)
  Receive Date: 20130521
  Receipt Date: 20130521
  Transmission Date: 20140414
  Serious: Yes (Other)
  Sender: FDA-Public Use
  Company Number: CHPA2013US008402

PATIENT
  Age: 8 Year
  Sex: Female

DRUGS (4)
  1. TRIAMINIC NIGHT TIME COLD + COUGH [Suspect]
     Indication: COUGH
     Dosage: ACCORDING TO LABEL
     Route: 048
  2. TRIAMINIC NIGHT TIME COLD + COUGH [Suspect]
     Indication: INSOMNIA
     Dosage: 1 DF, QHS
     Route: 048
     Dates: start: 20130511, end: 20130512
  3. TRIAMINIC DAY TIME COLD + COUGH [Suspect]
     Indication: COUGH
     Dosage: ACCORDING TO LABEL
     Route: 048
  4. TRIAMINIC COLD AND ALLERGY [Suspect]
     Dosage: ACCORDING TO LABEL
     Route: 048
     Dates: end: 2013

REACTIONS (3)
  - Bronchitis [Not Recovered/Not Resolved]
  - Dyspnoea [Not Recovered/Not Resolved]
  - Cough [Not Recovered/Not Resolved]
